FAERS Safety Report 15793200 (Version 1)
Quarter: 2019Q1

REPORT INFORMATION
  Report Type: Spontaneous
  Country: US (occurrence: US)
  Receive Date: 20190103
  Receipt Date: 20190103
  Transmission Date: 20190417
  Serious: No
  Sender: FDA-Public Use
  Company Number: None

PATIENT

DRUGS (3)
  1. DOBUTAMINE HCL [Suspect]
     Active Substance: DOBUTAMINE HYDROCHLORIDE
     Dosage: ?          OTHER ROUTE:INJECTION?
     Route: 042
  2. DOBUTAMINE HCL [Suspect]
     Active Substance: DOBUTAMINE HYDROCHLORIDE
     Route: 042
  3. DOBUTAMINE HCL [Suspect]
     Active Substance: DOBUTAMINE HYDROCHLORIDE
     Dosage: ?          OTHER STRENGTH:1000 MG PER 250 ML;OTHER ROUTE:INJECTION?
     Route: 042

REACTIONS (5)
  - Product dispensing error [None]
  - Product label confusion [None]
  - Product name confusion [None]
  - Incorrect dose administered [None]
  - Product packaging confusion [None]
